FAERS Safety Report 6427946-7 (Version None)
Quarter: 2009Q4

REPORT INFORMATION
  Report Type: 
  Country: None (occurrence: None)
  Receive Date: 20091105
  Receipt Date: 20091021
  Transmission Date: 20100525
  Serious: Yes (Other)
  Sender: FDA-Public Use
  Company Number: PHHY2009HR46952

PATIENT
  Sex: Male
  Weight: 2.8 kg

DRUGS (1)
  1. TEGRETOL [Suspect]
     Indication: EPILEPSY
     Dosage: MATERNAL DOSE WAS 2 X 200 MG/DAY
     Route: 064

REACTIONS (4)
  - APLASIA [None]
  - DRUG EXPOSURE DURING PREGNANCY [None]
  - DYSMORPHISM [None]
  - JOINT DISLOCATION [None]
